FAERS Safety Report 5105678-5 (Version None)
Quarter: 2006Q3

REPORT INFORMATION
  Report Type: 
  Country: None (occurrence: None)
  Receive Date: 20060915
  Receipt Date: 20060711
  Transmission Date: 20061208
  Serious: Yes (Hospitalization)
  Sender: FDA-Public Use
  Company Number: 2006CG01210

PATIENT
  Age: 71 Year
  Sex: Male
  Weight: 76 kg

DRUGS (5)
  1. CRESTOR [Suspect]
     Indication: HYPERLIPIDAEMIA
     Route: 048
     Dates: start: 20060429, end: 20060613
  2. ESIDRIX [Suspect]
     Indication: HYPERTENSION
     Route: 048
     Dates: start: 20060429, end: 20060613
  3. COZAAR [Suspect]
     Indication: HYPERTENSION
     Route: 048
     Dates: start: 20060429, end: 20060613
  4. TEMERIT [Concomitant]
     Indication: HYPERTENSION
     Route: 048
     Dates: start: 20050101, end: 20060613
  5. TEMERIT [Concomitant]
     Route: 048
     Dates: start: 20060614

REACTIONS (5)
  - ARTHRALGIA [None]
  - CHOLESTASIS [None]
  - PYREXIA [None]
  - RASH ERYTHEMATOUS [None]
  - THROMBOCYTOPENIA [None]
